FAERS Safety Report 4443948-4 (Version None)
Quarter: 2004Q3

REPORT INFORMATION
  Report Type: 
  Country: None (occurrence: None)
  Receive Date: 20040729
  Receipt Date: 20040521
  Transmission Date: 20050211
  Serious: Yes (Other)
  Sender: FDA-Public Use
  Company Number: US-JNJFOC-20040505758

PATIENT
  Sex: Male

DRUGS (4)
  1. RISPERDAL [Suspect]
     Dosage: SEE IMAGE
     Route: 048
     Dates: start: 20040401
  2. NEURONTIN [Concomitant]
  3. LAMICTAL [Concomitant]
  4. PAXIL (PAROETINE HYDROCHLORIDE) [Concomitant]

REACTIONS (2)
  - CONFUSIONAL STATE [None]
  - PRIAPISM [None]
